FAERS Safety Report 16528980 (Version 2)
Quarter: 2019Q3

REPORT INFORMATION
  Report Type: Report from Study
  Country: US (occurrence: US)
  Receive Date: 20190703
  Receipt Date: 20190722
  Transmission Date: 20191004
  Serious: Yes (Hospitalization)
  Sender: FDA-Public Use
  Company Number: US-EXELIXIS-CABO-19022180

PATIENT
  Age: 71 Year
  Sex: Female

DRUGS (8)
  1. ZOFRAN [Concomitant]
     Active Substance: ONDANSETRON HYDROCHLORIDE
  2. ALPRAZOLAM. [Concomitant]
     Active Substance: ALPRAZOLAM
  3. AMLODIPINE [Concomitant]
     Active Substance: AMLODIPINE BESYLATE
  4. PANTOPRAZOLE [Concomitant]
     Active Substance: PANTOPRAZOLE
  5. COMETRIQ [Suspect]
     Active Substance: CABOZANTINIB S-MALATE
     Dosage: 80 MG, UNK
     Route: 048
     Dates: start: 20190702
  6. PRAVASTATIN. [Concomitant]
     Active Substance: PRAVASTATIN
  7. COMETRIQ [Suspect]
     Active Substance: CABOZANTINIB S-MALATE
     Indication: MALIGNANT RESPIRATORY TRACT NEOPLASM
     Dosage: 140 MG, QD (1 X 80 + 3 X 20 MG)
     Route: 048
     Dates: start: 20190614, end: 20190625
  8. OLMESARTAN [Concomitant]
     Active Substance: OLMESARTAN

REACTIONS (8)
  - Off label use [Unknown]
  - Blood pressure increased [Unknown]
  - Nausea [Unknown]
  - Fatigue [Recovering/Resolving]
  - Fall [Unknown]
  - Stomatitis [Unknown]
  - Syncope [Unknown]
  - Cough [Unknown]

NARRATIVE: CASE EVENT DATE: 201906
